FAERS Safety Report 9522665 (Version 1)
Quarter: 2013Q3

REPORT INFORMATION
  Report Type: Spontaneous
  Country: FR (occurrence: FR)
  Receive Date: 20130913
  Receipt Date: 20130913
  Transmission Date: 20140515
  Serious: Yes (Hospitalization)
  Sender: FDA-Public Use
  Company Number: FR-ASTRAZENECA-2013SE67328

PATIENT
  Age: 70 Year
  Sex: Female

DRUGS (18)
  1. DIPRIVAN [Suspect]
     Indication: URETERIC OPERATION
     Route: 042
     Dates: start: 20130605, end: 20130605
  2. DIPRIVAN [Suspect]
     Indication: URETERIC OPERATION
     Route: 042
     Dates: start: 20130613
  3. MORPHINE [Suspect]
     Dates: start: 20130605, end: 20130605
  4. MORPHINE [Suspect]
     Dates: start: 20130613
  5. PARACETAMOL [Suspect]
     Dates: start: 20130605, end: 20130605
  6. PARACETAMOL [Suspect]
     Dates: start: 20130613
  7. SUFENTANIL [Suspect]
     Dates: start: 20130605, end: 20130605
  8. SUFENTANIL [Suspect]
     Dates: start: 20130613
  9. NEFOPAM [Suspect]
     Dates: start: 20130605, end: 20130605
  10. NEFOPAM [Suspect]
     Dates: start: 20130613
  11. POVIDONE [Suspect]
     Dates: start: 20130605, end: 20130605
  12. POVIDONE [Suspect]
     Dates: start: 20130613
  13. NIMBEX [Suspect]
     Dates: start: 20130605, end: 20130605
  14. NIMBEX [Suspect]
     Dates: start: 20130613
  15. EPHEDRINE AGUETTANT [Concomitant]
  16. KETAMINE PANPHARMA [Concomitant]
  17. PROFENID [Concomitant]
  18. CLINDAMYCIN [Concomitant]

REACTIONS (1)
  - Pancreatitis haemorrhagic [Recovered/Resolved]
